FAERS Safety Report 8234339-9 (Version None)
Quarter: 2012Q1

REPORT INFORMATION
  Report Type: 
  Country: None (occurrence: None)
  Receive Date: 20120326
  Receipt Date: 20120319
  Transmission Date: 20120608
  Serious: Yes (Other)
  Sender: FDA-Public Use
  Company Number: US-AMGEN-USASP2012017593

PATIENT
  Age: 30 Year
  Sex: Female

DRUGS (1)
  1. ENBREL [Suspect]
     Indication: RHEUMATOID ARTHRITIS
     Dosage: 25 MG, QWK
     Dates: start: 20110501, end: 20120309

REACTIONS (8)
  - CHEST PAIN [None]
  - CARDIAC FLUTTER [None]
  - PNEUMONIA [None]
  - INJECTION SITE PAIN [None]
  - BLOOD PRESSURE INCREASED [None]
  - ANXIETY [None]
  - RHEUMATOID ARTHRITIS [None]
  - EAR INFECTION [None]
